FAERS Safety Report 15115573 (Version 1)
Quarter: 2018Q3

REPORT INFORMATION
  Report Type: Spontaneous
  Country: US (occurrence: US)
  Receive Date: 20180706
  Receipt Date: 20180706
  Transmission Date: 20181010
  Serious: No
  Sender: FDA-Public Use
  Company Number: US-RECKITT BENCKISER HEALTHCARE INT LIMITED-RB-83655-2018

PATIENT
  Sex: Male

DRUGS (1)
  1. MUCINEX DM MAXIMUM STRENGTH [Suspect]
     Active Substance: DEXTROMETHORPHAN HYDROBROMIDE\GUAIFENESIN
     Indication: PRODUCT USED FOR UNKNOWN INDICATION
     Dosage: 2400 MG (AMOUNT USED: 2 TABLETS AND FREQUENCY OF USE: 2 TABLETS)
     Route: 065
     Dates: start: 20180206

REACTIONS (2)
  - Feeling abnormal [Recovered/Resolved]
  - Accidental overdose [Unknown]
